FAERS Safety Report 6640022-3 (Version None)
Quarter: 2010Q1

REPORT INFORMATION
  Report Type: 
  Country: None (occurrence: None)
  Receive Date: 20100318
  Receipt Date: 20100308
  Transmission Date: 20100710
  Serious: Yes (Other)
  Sender: FDA-Public Use
  Company Number: PHEH2010US02223

PATIENT
  Sex: Male

DRUGS (3)
  1. EXJADE [Suspect]
     Indication: LYMPHOMA
     Dosage: 2000 MG, DAILY
     Route: 048
     Dates: start: 20100114
  2. EXJADE [Suspect]
     Dosage: 500 MG, DAILY
     Route: 048
  3. EXJADE [Suspect]
     Dosage: 1000 MG DAILY
     Route: 048

REACTIONS (3)
  - CLOSTRIDIUM COLITIS [None]
  - COLITIS [None]
  - DIARRHOEA [None]
